FAERS Safety Report 4303846-3 (Version None)
Quarter: 2004Q1

REPORT INFORMATION
  Report Type: 
  Country: None (occurrence: None)
  Receive Date: 20040224
  Receipt Date: 20040224
  Transmission Date: 20041129
  Serious: Yes (Hospitalization)
  Sender: FDA-Public Use
  Company Number: None

PATIENT
  Sex: Female
  Weight: 56.8 kg

DRUGS (4)
  1. CYCLOPHOSPHAMDIE [Suspect]
     Indication: BREAST CANCER
     Dosage: 600MG/M2 IV EVERY 14 DAYS
     Route: 042
     Dates: start: 20040219
  2. DOXORUBICIN HCL [Suspect]
     Indication: BREAST CANCER
     Dosage: 60MG/M2 IV EVERY 14 D
     Route: 042
     Dates: start: 20040219
  3. PEGFILGRASTIM [Concomitant]
  4. DARBEPOETIN [Concomitant]

REACTIONS (2)
  - SUICIDAL IDEATION [None]
  - TEARFULNESS [None]
